FAERS Safety Report 7574042-1 (Version None)
Quarter: 2011Q2

REPORT INFORMATION
  Report Type: 
  Country: None (occurrence: None)
  Receive Date: 20110621
  Receipt Date: 20110610
  Transmission Date: 20111010
  Serious: Yes (Hospitalization, Other)
  Sender: FDA-Public Use
  Company Number: 2010SP038520

PATIENT
  Age: 26 Year
  Sex: Female
  Weight: 41.7309 kg

DRUGS (3)
  1. MULTI-VITAMINS [Concomitant]
  2. LITHIUM [Concomitant]
  3. NUVARING [Suspect]
     Indication: CONTRACEPTION

REACTIONS (9)
  - LOSS OF CONSCIOUSNESS [None]
  - ANAEMIA [None]
  - HYPERCOAGULATION [None]
  - IRON DEFICIENCY ANAEMIA [None]
  - CEREBROVASCULAR ACCIDENT [None]
  - THROMBOSIS [None]
  - CEREBRAL HAEMORRHAGE [None]
  - HYPERKALAEMIA [None]
  - CEREBRAL VENOUS THROMBOSIS [None]
